FAERS Safety Report 5325848-0 (Version None)
Quarter: 2007Q2

REPORT INFORMATION
  Report Type: 
  Country: None (occurrence: None)
  Receive Date: 20070510
  Receipt Date: 20070424
  Transmission Date: 20071010
  Serious: Yes (Congenital Anomaly)
  Sender: FDA-Public Use
  Company Number: 2007EU000938

PATIENT
  Sex: 0

DRUGS (1)
  1. PROGRAF [Suspect]
     Dosage: 0.1% , TRANSPLACENTAL
     Route: 064

REACTIONS (2)
  - CHROMOSOME ABNORMALITY [None]
  - DRUG EXPOSURE DURING PREGNANCY [None]
